FAERS Safety Report 22355814 (Version 1)
Quarter: 2023Q2

REPORT INFORMATION
  Report Type: Report from Study
  Country: CN (occurrence: CN)
  Receive Date: 20230523
  Receipt Date: 20230523
  Transmission Date: 20230722
  Serious: Yes (Other)
  Sender: FDA-Public Use
  Company Number: CN-SUN PHARMACEUTICAL INDUSTRIES LTD-2023R1-389478

PATIENT
  Sex: Male

DRUGS (4)
  1. CISPLATIN [Concomitant]
     Active Substance: CISPLATIN
     Indication: Testicular yolk sac tumour
     Dosage: UNK
     Route: 065
  2. METHOTREXATE [Suspect]
     Active Substance: METHOTREXATE
     Indication: Testicular yolk sac tumour
     Dosage: UNK
     Route: 065
  3. VINCRISTINE [Suspect]
     Active Substance: VINCRISTINE
     Indication: Testicular yolk sac tumour
     Dosage: UNK
     Route: 065
  4. BLEOMYCIN [Suspect]
     Active Substance: BLEOMYCIN SULFATE
     Indication: Testicular yolk sac tumour
     Dosage: UNK
     Route: 065

REACTIONS (1)
  - Disease recurrence [Unknown]
